FAERS Safety Report 22331968 (Version 1)
Quarter: 2023Q2

REPORT INFORMATION
  Report Type: Spontaneous
  Country: US (occurrence: US)
  Receive Date: 20230517
  Receipt Date: 20230517
  Transmission Date: 20230722
  Serious: No
  Sender: FDA-Public Use
  Company Number: US-BRISTOL-MYERS SQUIBB COMPANY-2023-069278

PATIENT
  Age: 63 Year
  Sex: Male
  Weight: 100.33 kg

DRUGS (1)
  1. THALOMID [Suspect]
     Active Substance: THALIDOMIDE
     Indication: Plasma cell myeloma
     Dosage: 21 DAYS ON, 7 DAYS OFF.
     Route: 048
     Dates: start: 20120929, end: 20130227

REACTIONS (1)
  - Toxicity to various agents [Unknown]
